FAERS Safety Report 7178850-0 (Version None)
Quarter: 2010Q4

REPORT INFORMATION
  Report Type: 
  Country: None (occurrence: None)
  Receive Date: 20101221
  Receipt Date: 20101214
  Transmission Date: 20110411
  Serious: Yes (Hospitalization)
  Sender: FDA-Public Use
  Company Number: GB-BRISTOL-MYERS SQUIBB COMPANY-15440159

PATIENT
  Age: 74 Year
  Sex: Male
  Weight: 70 kg

DRUGS (4)
  1. IRBESARTAN [Suspect]
     Indication: HYPERTENSION
     Route: 048
     Dates: start: 20100917, end: 20101120
  2. RAMIPRIL [Concomitant]
  3. TEMAZEPAM [Concomitant]
  4. ONDANSETRON [Concomitant]

REACTIONS (2)
  - DYSGEUSIA [None]
  - JAUNDICE CHOLESTATIC [None]
